FAERS Safety Report 25415048 (Version 1)
Quarter: 2025Q2

REPORT INFORMATION
  Report Type: Spontaneous
  Country: FR (occurrence: FR)
  Receive Date: 20250609
  Receipt Date: 20250609
  Transmission Date: 20250716
  Serious: Yes (Hospitalization)
  Sender: MERCK SHARP & DOHME LLC
  Company Number: None

PATIENT
  Age: 77 Year
  Sex: Male

DRUGS (1)
  1. PEMBROLIZUMAB [Suspect]
     Active Substance: PEMBROLIZUMAB
     Indication: Squamous cell carcinoma of lung
     Route: 042
     Dates: start: 2023

REACTIONS (3)
  - Asthenia [Recovered/Resolved]
  - Arthralgia [Recovered/Resolved]
  - Cortisol decreased [Recovered/Resolved]

NARRATIVE: CASE EVENT DATE: 20230720
